FAERS Safety Report 9188195 (Version 1)
Quarter: 2013Q1

REPORT INFORMATION
  Report Type: Spontaneous
  Country: US (occurrence: US)
  Receive Date: 20130325
  Receipt Date: 20130325
  Transmission Date: 20140127
  Serious: No
  Sender: FDA-Public Use
  Company Number: US-PFIZER INC-2013093261

PATIENT
  Age: 56 Year
  Sex: Male

DRUGS (2)
  1. AMLODIPINE BESILATE [Suspect]
     Dosage: UNK
  2. LOSARTAN [Suspect]
     Dosage: UNK

REACTIONS (4)
  - Fatigue [Unknown]
  - Lethargy [Unknown]
  - Asthenia [Unknown]
  - Feeling abnormal [Unknown]
